FAERS Safety Report 4969476-5 (Version None)
Quarter: 2006Q2

REPORT INFORMATION
  Report Type: 
  Country: None (occurrence: None)
  Receive Date: 20060406
  Receipt Date: 20060329
  Transmission Date: 20061013
  Serious: Yes (Death)
  Sender: FDA-Public Use
  Company Number: R301520-PAP-USA

PATIENT
  Age: 84 Year
  Sex: Female

DRUGS (12)
  1. ACIPHEX [Suspect]
     Indication: GASTROOESOPHAGEAL REFLUX DISEASE
     Dosage: 20 MG, ORAL
     Route: 048
  2. OXYGEN (OXYGEN) [Concomitant]
  3. DILTIAZEM [Concomitant]
  4. FUEROSEMIDE (FUROSEMIDE) [Concomitant]
  5. PREDNISONE (PEDNISONE) [Concomitant]
  6. FOSAMAX [Concomitant]
  7. XOPENEX [Concomitant]
  8. SPIRIVA [Concomitant]
  9. MORPHINE [Concomitant]
  10. ATIVAN [Concomitant]
  11. CAPTOPRIL [Concomitant]
  12. ASPIRIN [Concomitant]

REACTIONS (1)
  - CHRONIC OBSTRUCTIVE PULMONARY DISEASE [None]
